FAERS Safety Report 8958618 (Version 1)
Quarter: 2012Q4

REPORT INFORMATION
  Report Type: Spontaneous
  Country: US (occurrence: None)
  Receive Date: 20121206
  Receipt Date: 20121206
  Transmission Date: 20130627
  Serious: Yes (Hospitalization)
  Sender: FDA-Public Use
  Company Number: None

PATIENT
  Sex: Male
  Weight: 68 kg

DRUGS (2)
  1. XARELTO [Suspect]
     Indication: DVT
     Dosage: 20mg daily po
     Route: 048
     Dates: start: 20121112, end: 20121128
  2. XARELTO [Suspect]
     Indication: ATRIAL FIBRILLATION
     Dosage: 20mg daily po
     Route: 048
     Dates: start: 20121112, end: 20121128

REACTIONS (1)
  - Gastrointestinal haemorrhage [None]
